FAERS Safety Report 8896394 (Version 1)
Quarter: 2012Q4

REPORT INFORMATION
  Report Type: Spontaneous
  Country: GB (occurrence: None)
  Receive Date: 20121102
  Receipt Date: 20121102
  Transmission Date: 20130627
  Serious: Yes (Hospitalization)
  Sender: FDA-Public Use
  Company Number: 1464640

PATIENT
  Age: 3 Year
  Sex: Male
  Weight: 7.71 kg

DRUGS (2)
  1. METHOTREXATE [Suspect]
     Indication: JUVENILE IDIOPATHIC ARTHRITIS
     Route: 058
     Dates: start: 20111221
  2. FOLIC ACID [Concomitant]

REACTIONS (1)
  - Varicella [None]
